FAERS Safety Report 23375816 (Version 2)
Quarter: 2024Q1

REPORT INFORMATION
  Report Type: Report from Study
  Country: US (occurrence: US)
  Receive Date: 20240108
  Receipt Date: 20240108
  Transmission Date: 20240410
  Serious: Yes (Other)
  Sender: FDA-Public Use
  Company Number: US-ABBVIE-5549603

PATIENT
  Age: 25 Year
  Sex: Female
  Weight: 71 kg

DRUGS (6)
  1. HUMIRA [Suspect]
     Active Substance: ADALIMUMAB
     Indication: Ankylosing spondylitis
     Dosage: FORM STRENGTH: 40 MG
     Route: 058
     Dates: start: 20230621, end: 20231122
  2. HUMIRA [Suspect]
     Active Substance: ADALIMUMAB
     Dosage: FORM STRENGTH: 40 MG
     Route: 058
     Dates: start: 20231227
  3. IBUPROFEN [Concomitant]
     Active Substance: IBUPROFEN
     Indication: Product used for unknown indication
     Dosage: FREQUENCY TEXT: 1 TAB EVERY 6HR WITH FOOD AS NEEDED
     Dates: start: 20231213, end: 20231220
  4. ACETAMINOPHEN\HYDROCODONE [Concomitant]
     Active Substance: ACETAMINOPHEN\HYDROCODONE
     Indication: Product used for unknown indication
     Dosage: FREQUENCY TEXT: 1 TB PO EVERY 4-6 HRS AS NEEDED
     Route: 048
     Dates: start: 20231213, end: 20231220
  5. AMOXICILLIN [Concomitant]
     Active Substance: AMOXICILLIN
     Indication: Product used for unknown indication
     Dosage: FREQUENCY TEXT: 1 CAPUSULE ORAL 3 TIMES A DAY
     Dates: start: 20231213, end: 20231220
  6. METHYLPREDNISOLONE [Concomitant]
     Active Substance: METHYLPREDNISOLONE
     Indication: Product used for unknown indication
     Dosage: FREQUENCY TEXT: MOUTH AS PER PACKAGE INSTRUCTIONS
     Dates: start: 20231213, end: 20231220

REACTIONS (1)
  - Tooth malformation [Recovered/Resolved]

NARRATIVE: CASE EVENT DATE: 20231213
